FAERS Safety Report 12818323 (Version 1)
Quarter: 2016Q4

REPORT INFORMATION
  Report Type: Report from Study
  Country: DE (occurrence: DE)
  Receive Date: 20161006
  Receipt Date: 20161006
  Transmission Date: 20170207
  Serious: Yes (Other)
  Sender: FDA-Public Use
  Company Number: DE-ROCHE-1838426

PATIENT

DRUGS (4)
  1. DEXAMETHASONE. [Suspect]
     Active Substance: DEXAMETHASONE
     Indication: NON-HODGKIN^S LYMPHOMA
     Dosage: DOSE: 40 MG ON DAYS THREE TO FIVE
     Route: 048
  2. CYTARABINE. [Suspect]
     Active Substance: CYTARABINE
     Indication: NON-HODGKIN^S LYMPHOMA
     Route: 042
  3. CISPLATIN. [Suspect]
     Active Substance: CISPLATIN
     Indication: NON-HODGKIN^S LYMPHOMA
     Route: 065
  4. RITUXIMAB [Suspect]
     Active Substance: RITUXIMAB
     Indication: NON-HODGKIN^S LYMPHOMA
     Route: 042

REACTIONS (12)
  - Leukopenia [Unknown]
  - Stomatitis [Unknown]
  - Bone marrow failure [Unknown]
  - Nephropathy toxic [Unknown]
  - Cardiotoxicity [Unknown]
  - Febrile neutropenia [Unknown]
  - Vomiting [Unknown]
  - Thrombocytopenia [Unknown]
  - Diarrhoea [Unknown]
  - Seizure [Unknown]
  - Nausea [Unknown]
  - Electrolyte imbalance [Unknown]
